FAERS Safety Report 5504575-0 (Version None)
Quarter: 2007Q4

REPORT INFORMATION
  Report Type: 
  Country: None (occurrence: None)
  Receive Date: 20071031
  Receipt Date: 20071025
  Transmission Date: 20080405
  Serious: Yes (Death, Hospitalization)
  Sender: FDA-Public Use
  Company Number: 2007SP021662

PATIENT
  Age: 63 Year
  Sex: Male

DRUGS (3)
  1. TEMOZOLOMIDE [Suspect]
     Indication: GLIOBLASTOMA
     Dates: start: 20050303, end: 20050421
  2. DOXORUBICIN HYDROCHLORIDE [Suspect]
     Indication: GLIOBLASTOMA
     Dates: start: 20050224
  3. CORTIZONE [Concomitant]

REACTIONS (8)
  - ATAXIA [None]
  - GENERAL PHYSICAL HEALTH DETERIORATION [None]
  - GLIOBLASTOMA [None]
  - MALIGNANT NEOPLASM PROGRESSION [None]
  - NEUROGENIC BLADDER [None]
  - PNEUMOCOCCAL SEPSIS [None]
  - SOMNOLENCE [None]
  - URINARY TRACT INFECTION [None]
